FAERS Safety Report 10188416 (Version 1)
Quarter: 2014Q2

REPORT INFORMATION
  Report Type: Spontaneous
  Country: US (occurrence: None)
  Receive Date: 20140521
  Receipt Date: 20140521
  Transmission Date: 20141212
  Serious: Yes (Other)
  Sender: FDA-Public Use
  Company Number: None

PATIENT
  Age: 59 Year
  Sex: Female
  Weight: 60.78 kg

DRUGS (7)
  1. INVOKANA [Suspect]
     Indication: DRUG THERAPY
  2. LISINOPRIL [Concomitant]
  3. IBUPROFEN [Concomitant]
  4. METPHORMEN [Concomitant]
  5. MULTI VITAMIN [Concomitant]
  6. ALLERGY [Concomitant]
  7. 83 MG ASPIRIN [Concomitant]

REACTIONS (1)
  - Fungal infection [None]
